FAERS Safety Report 5852131-7 (Version None)
Quarter: 2008Q3

REPORT INFORMATION
  Report Type: 
  Country: None (occurrence: None)
  Receive Date: 20080819
  Receipt Date: 20080819
  Transmission Date: 20090109
  Serious: Yes (Hospitalization)
  Sender: FDA-Public Use
  Company Number: None

PATIENT
  Age: 82 Year
  Sex: Male
  Weight: 60 kg

DRUGS (10)
  1. WARFARIN SODIUM [Suspect]
     Indication: ATRIAL FIBRILLATION
     Dosage: 5MG DAILY PO  (DURATION: CHRONIC)
     Route: 048
  2. SLO-BID [Concomitant]
  3. LIPITOR [Concomitant]
  4. STARLIX [Concomitant]
  5. LANOXIN [Concomitant]
  6. LISINOPRIL [Concomitant]
  7. SPIRIVA [Concomitant]
  8. COREG [Concomitant]
  9. ADVAIR DISKUS 100/50 [Concomitant]
  10. SPIRONOLACTONE [Concomitant]

REACTIONS (2)
  - EPISTAXIS [None]
  - HAEMORRHAGIC ANAEMIA [None]
